FAERS Safety Report 7597985-1 (Version None)
Quarter: 2011Q3

REPORT INFORMATION
  Report Type: 
  Country: None (occurrence: None)
  Receive Date: 20110708
  Receipt Date: 20110630
  Transmission Date: 20111222
  Serious: Yes (Other)
  Sender: FDA-Public Use
  Company Number: PHHY2011GB58374

PATIENT
  Age: 39 Year
  Sex: Female

DRUGS (2)
  1. PREDNISONE [Suspect]
     Dosage: 20 MG, UNK
  2. PREDNISONE [Suspect]
     Indication: SARCOIDOSIS
     Dosage: 30 MG, UNK

REACTIONS (4)
  - GLYCOSYLATED HAEMOGLOBIN INCREASED [None]
  - SLEEP APNOEA SYNDROME [None]
  - WEIGHT INCREASED [None]
  - DIABETES MELLITUS [None]
